FAERS Safety Report 20065510 (Version 2)
Quarter: 2021Q4

REPORT INFORMATION
  Report Type: Spontaneous
  Country: FR (occurrence: FR)
  Receive Date: 20211113
  Receipt Date: 20211203
  Transmission Date: 20220303
  Serious: Yes (Other)
  Sender: FDA-Public Use
  Company Number: FR-NOVARTISPH-NVSC2021FR256725

PATIENT
  Age: 18 Year
  Sex: Female
  Weight: 82 kg

DRUGS (1)
  1. TASIGNA [Suspect]
     Active Substance: NILOTINIB
     Indication: Chronic myeloid leukaemia
     Dosage: 300 MG (150 MG DOSE = 300 MG) (MORNING AND EVENING)
     Route: 048
     Dates: start: 202105

REACTIONS (1)
  - Cortisol increased [Not Recovered/Not Resolved]

NARRATIVE: CASE EVENT DATE: 20211001
